FAERS Safety Report 7505239-4 (Version None)
Quarter: 2011Q2

REPORT INFORMATION
  Report Type: 
  Country: None (occurrence: None)
  Receive Date: 20110526
  Receipt Date: 20110523
  Transmission Date: 20111010
  Serious: No
  Sender: FDA-Public Use
  Company Number: US-PFIZER INC-2011110787

PATIENT
  Sex: Female
  Weight: 64.399 kg

DRUGS (2)
  1. EFFEXOR XR [Suspect]
     Indication: ANXIETY
     Dosage: 75 MG, 2X/DAY
     Route: 048
     Dates: start: 20080101, end: 20110101
  2. EFFEXOR XR [Suspect]
     Indication: DEPRESSION

REACTIONS (5)
  - DRUG INEFFECTIVE [None]
  - ABDOMINAL DISCOMFORT [None]
  - AGITATION [None]
  - NAUSEA [None]
  - DEPRESSED MOOD [None]
